FAERS Safety Report 5059916-8 (Version None)
Quarter: 2006Q3

REPORT INFORMATION
  Report Type: 
  Country: None (occurrence: None)
  Receive Date: 20060719
  Receipt Date: 20060707
  Transmission Date: 20061208
  Serious: Yes (Other)
  Sender: FDA-Public Use
  Company Number: S06-GER-02856-01

PATIENT
  Age: 46 Year
  Sex: Male

DRUGS (3)
  1. ESCITALOPRAM OXALATE [Suspect]
     Indication: DEPRESSION
     Dosage: 10 MG QD PO
     Route: 048
     Dates: start: 20060410, end: 20060602
  2. ATORVASTATIN CALCIUM [Concomitant]
  3. ZOLPIDEM TARTRATE [Concomitant]

REACTIONS (2)
  - DERMATITIS BULLOUS [None]
  - RASH [None]
